FAERS Safety Report 5236777-5 (Version None)
Quarter: 2007Q1

REPORT INFORMATION
  Report Type: 
  Country: None (occurrence: None)
  Receive Date: 20061208
  Receipt Date: 20041129
  Transmission Date: 20070707
  Serious: Yes (Other)
  Sender: FDA-Public Use
  Company Number: 2004UW24370

PATIENT
  Age: 65 Year
  Sex: Female

DRUGS (7)
  1. CRESTOR [Suspect]
     Indication: BLOOD CHOLESTEROL INCREASED
     Dosage: 10 MG DAILY PO
     Route: 048
     Dates: start: 20041001, end: 20041123
  2. PREMARIN [Concomitant]
  3. TOPAMAX [Concomitant]
  4. TOPROL-XL [Concomitant]
  5. ISOSORBIDE [Concomitant]
  6. PAXIL [Concomitant]
  7. ASPIRIN [Concomitant]

REACTIONS (3)
  - HYPOTRICHOSIS [None]
  - MUSCLE SPASMS [None]
  - MYALGIA [None]
